FAERS Safety Report 6312218-1 (Version None)
Quarter: 2009Q3

REPORT INFORMATION
  Report Type: 
  Country: None (occurrence: None)
  Receive Date: 20090817
  Receipt Date: 20090805
  Transmission Date: 20100115
  Serious: Yes (Death, Other)
  Sender: FDA-Public Use
  Company Number: JP-PFIZER INC-2009251748

PATIENT
  Age: 41 Year

DRUGS (2)
  1. METHYLPREDNISOLONE AND METHYLPREDNISOLONE ACETATE AND METHYLPREDNISOLO [Suspect]
     Indication: HEPATITIS FULMINANT
     Dates: start: 20090101, end: 20090101
  2. ENTECAVIR [Suspect]
     Indication: HEPATITIS FULMINANT

REACTIONS (3)
  - BRONCHOPULMONARY ASPERGILLOSIS [None]
  - HEPATIC FAILURE [None]
  - NOCARDIOSIS [None]
